FAERS Safety Report 5357369-3 (Version None)
Quarter: 2007Q2

REPORT INFORMATION
  Report Type: 
  Country: None (occurrence: None)
  Receive Date: 20070614
  Receipt Date: 20070604
  Transmission Date: 20071010
  Serious: Yes (Hospitalization)
  Sender: FDA-Public Use
  Company Number: B0473878A

PATIENT
  Age: 73 Year
  Sex: Male
  Weight: 77 kg

DRUGS (5)
  1. PAROXETINE [Suspect]
     Dosage: 1UNIT PER DAY
     Route: 048
  2. PLAVIX [Suspect]
     Indication: CEREBROVASCULAR DISORDER
     Dosage: 1UNIT PER DAY
     Route: 048
  3. COZAAR [Concomitant]
     Indication: ESSENTIAL HYPERTENSION
     Dosage: 1UNIT PER DAY
     Route: 048
  4. PRAVASTATIN SODIUM [Concomitant]
     Indication: LIPID METABOLISM DISORDER
     Dosage: 20MG PER DAY
     Route: 048
  5. DIPROSONE [Concomitant]
     Route: 061

REACTIONS (3)
  - HAEMORRHOIDS [None]
  - POLYP [None]
  - RECTAL HAEMORRHAGE [None]
